FAERS Safety Report 5534272-7 (Version None)
Quarter: 2007Q4

REPORT INFORMATION
  Report Type: 
  Country: None (occurrence: None)
  Receive Date: 20071130
  Receipt Date: 20071119
  Transmission Date: 20080405
  Serious: Yes (Life-Threatening, Hospitalization)
  Sender: FDA-Public Use
  Company Number: GXKR2007TR09917

PATIENT
  Age: 4 Year
  Sex: Male

DRUGS (1)
  1. AMITRIPTLINE HCL [Suspect]
     Dosage: 70 MG/KG, ORAL
     Route: 048

REACTIONS (14)
  - ACCIDENTAL OVERDOSE [None]
  - BRADYCARDIA [None]
  - CARDIO-RESPIRATORY ARREST [None]
  - CARDIOVERSION [None]
  - COMA [None]
  - GRAND MAL CONVULSION [None]
  - HYPOTENSION [None]
  - HYPOVENTILATION [None]
  - INTUBATION [None]
  - LOSS OF CONSCIOUSNESS [None]
  - RESUSCITATION [None]
  - VENTRICULAR EXTRASYSTOLES [None]
  - VENTRICULAR FIBRILLATION [None]
  - VENTRICULAR TACHYCARDIA [None]
